FAERS Safety Report 6100885-7 (Version None)
Quarter: 2009Q1

REPORT INFORMATION
  Report Type: 
  Country: None (occurrence: None)
  Receive Date: 20090304
  Receipt Date: 20090302
  Transmission Date: 20090719
  Serious: Yes (Other)
  Sender: FDA-Public Use
  Company Number: US-JNJFOC-20090101178

PATIENT
  Sex: Female
  Weight: 101.61 kg

DRUGS (3)
  1. DURAGESIC-100 [Suspect]
     Indication: PAIN
     Route: 062
  2. GABAPENTIN [Concomitant]
     Indication: NERVE INJURY
     Route: 065
  3. LEXAPRO [Concomitant]
     Indication: DEPRESSION
     Route: 065

REACTIONS (5)
  - COUGH [None]
  - INAPPROPRIATE SCHEDULE OF DRUG ADMINISTRATION [None]
  - MIGRAINE [None]
  - RESPIRATORY DISORDER [None]
  - VOMITING [None]
